FAERS Safety Report 5724621-9 (Version None)
Quarter: 2008Q2

REPORT INFORMATION
  Report Type: 
  Country: None (occurrence: None)
  Receive Date: 20080428
  Receipt Date: 20071116
  Transmission Date: 20081010
  Serious: Yes (Other)
  Sender: FDA-Public Use
  Company Number: 79000

PATIENT
  Sex: Female

DRUGS (1)
  1. ALVESCO [Suspect]
     Dosage: DF INHALATION
     Route: 055

REACTIONS (1)
  - DYSPNOEA [None]
